FAERS Safety Report 11348749 (Version 1)
Quarter: 2015Q3

REPORT INFORMATION
  Report Type: Spontaneous
  Country: US (occurrence: US)
  Receive Date: 20150806
  Receipt Date: 20150806
  Transmission Date: 20151125
  Serious: Yes (Hospitalization, Other)
  Sender: FDA-Public Use
  Company Number: US-FRI-1000078783

PATIENT
  Age: 62 Year
  Sex: Male

DRUGS (7)
  1. RISPERDAL [Suspect]
     Active Substance: RISPERIDONE
     Indication: AGITATION
     Dosage: 3MG
     Route: 048
     Dates: start: 20150508
  2. NUEDEXTA [Suspect]
     Active Substance: DEXTROMETHORPHAN HYDROBROMIDE\QUINIDINE SULFATE
     Indication: AFFECT LABILITY
     Dosage: 40/20 MG
     Route: 048
     Dates: start: 20150508, end: 20150515
  3. ARICEPT [Suspect]
     Active Substance: DONEPEZIL HYDROCHLORIDE
     Indication: DEMENTIA
     Dosage: 10MG
     Route: 048
     Dates: start: 20150508
  4. TRAZODONE [Suspect]
     Active Substance: TRAZODONE HYDROCHLORIDE
     Indication: INSOMNIA
     Dosage: 50MG
     Route: 048
     Dates: start: 20150508
  5. HALDOL [Suspect]
     Active Substance: HALOPERIDOL
     Indication: AGITATION
     Route: 048
     Dates: start: 20150509
  6. CELEXA [Suspect]
     Active Substance: CITALOPRAM HYDROBROMIDE
     Indication: DEPRESSION
     Dosage: 20MG
     Route: 048
     Dates: start: 20150508
  7. COGENTIN [Suspect]
     Active Substance: BENZTROPINE MESYLATE
     Indication: DEMENTIA
     Dosage: 1MG
     Route: 048
     Dates: start: 20150508

REACTIONS (7)
  - Dysarthria [Recovered/Resolved with Sequelae]
  - Serotonin syndrome [Recovered/Resolved with Sequelae]
  - Agitation [Recovered/Resolved with Sequelae]
  - Lethargy [Recovered/Resolved with Sequelae]
  - Gait disturbance [Recovered/Resolved with Sequelae]
  - Decreased appetite [Recovered/Resolved with Sequelae]
  - Fall [Recovered/Resolved with Sequelae]

NARRATIVE: CASE EVENT DATE: 201506
